FAERS Safety Report 10433894 (Version 1)
Quarter: 2014Q3

REPORT INFORMATION
  Report Type: Spontaneous
  Country: US (occurrence: US)
  Receive Date: 20140905
  Receipt Date: 20140905
  Transmission Date: 20150326
  Serious: Yes (Hospitalization)
  Sender: FDA-Public Use
  Company Number: US-GLAXOSMITHKLINE-A0849361A

PATIENT
  Sex: Male
  Weight: 113.6 kg

DRUGS (1)
  1. AVANDIA [Suspect]
     Active Substance: ROSIGLITAZONE MALEATE
     Indication: DIABETES MELLITUS
     Dosage: 4MG PER DAY
     Route: 048
     Dates: start: 20011010, end: 20090207

REACTIONS (5)
  - Myocardial ischaemia [Unknown]
  - Atrial flutter [Unknown]
  - Coronary artery disease [Unknown]
  - Cardiac failure congestive [Not Recovered/Not Resolved]
  - Atrial fibrillation [Unknown]
